FAERS Safety Report 12509658 (Version 2)
Quarter: 2016Q3

REPORT INFORMATION
  Report Type: Report from Study
  Country: US (occurrence: US)
  Receive Date: 20160629
  Receipt Date: 20160909
  Transmission Date: 20161109
  Serious: Yes (Other)
  Sender: FDA-Public Use
  Company Number: US-JNJFOC-20160625727

PATIENT
  Sex: Male

DRUGS (12)
  1. NEXIUM [Concomitant]
     Active Substance: ESOMEPRAZOLE MAGNESIUM
  2. IMBRUVICA [Suspect]
     Active Substance: IBRUTINIB
     Indication: CHRONIC LYMPHOCYTIC LEUKAEMIA
     Route: 048
  3. IMBRUVICA [Suspect]
     Active Substance: IBRUTINIB
     Indication: CHRONIC LYMPHOCYTIC LEUKAEMIA
     Route: 048
     Dates: start: 20140327
  4. COUMADIN [Concomitant]
     Active Substance: WARFARIN SODIUM
  5. XANAX [Concomitant]
     Active Substance: ALPRAZOLAM
  6. CIALIS [Concomitant]
     Active Substance: TADALAFIL
  7. CENTRUM SILVER [Concomitant]
     Active Substance: MINERALS\VITAMINS
  8. LIPITOR [Concomitant]
     Active Substance: ATORVASTATIN CALCIUM
  9. PROSCAR [Concomitant]
     Active Substance: FINASTERIDE
  10. VITAMIN D [Concomitant]
     Active Substance: CHOLECALCIFEROL
  11. ACYCLOVIR. [Concomitant]
     Active Substance: ACYCLOVIR
  12. RAPAFLO [Concomitant]
     Active Substance: SILODOSIN

REACTIONS (1)
  - Malignant melanoma [Recovered/Resolved]
